FAERS Safety Report 18506631 (Version 1)
Quarter: 2020Q4

REPORT INFORMATION
  Report Type: Spontaneous
  Country: CN (occurrence: CN)
  Receive Date: 20201116
  Receipt Date: 20201116
  Transmission Date: 20210114
  Serious: Yes (Other)
  Sender: FDA-Public Use
  Company Number: CN-BAYER-2020-241208

PATIENT
  Age: 52 Year
  Sex: Male
  Weight: 60 kg

DRUGS (1)
  1. AVELOX [Suspect]
     Active Substance: MOXIFLOXACIN HYDROCHLORIDE
     Indication: BRONCHITIS
     Dosage: 0.4 G, QD
     Route: 048
     Dates: start: 20201025, end: 20201025

REACTIONS (5)
  - Hallucination [Recovering/Resolving]
  - Persecutory delusion [Recovering/Resolving]
  - Impatience [Recovering/Resolving]
  - Abnormal dreams [Recovering/Resolving]
  - Paraesthesia [Recovering/Resolving]

NARRATIVE: CASE EVENT DATE: 20201025
